FAERS Safety Report 12382073 (Version 1)
Quarter: 2016Q2

REPORT INFORMATION
  Report Type: Spontaneous
  Country: US (occurrence: None)
  Receive Date: 20160517
  Receipt Date: 20160517
  Transmission Date: 20160815
  Serious: Yes (Other)
  Sender: FDA-Public Use
  Company Number: None

PATIENT
  Age: 61 Year
  Sex: Male

DRUGS (10)
  1. LISINOPRIL-HYDROCHLOROTHIAZIDE [Concomitant]
     Active Substance: HYDROCHLOROTHIAZIDE\LISINOPRIL
  2. ALLOPURINOL. [Concomitant]
     Active Substance: ALLOPURINOL
  3. MULTIVITAMIN [Concomitant]
     Active Substance: VITAMINS
  4. ATORVASTATIN, 80MG [Suspect]
     Active Substance: ATORVASTATIN
     Indication: HYPERLIPIDAEMIA
     Route: 048
  5. AMLODIPINE DESYLATE [Concomitant]
  6. SENNOSIDE-DOCUSATE SODIUM [Concomitant]
  7. FENOFIBRATE. [Concomitant]
     Active Substance: FENOFIBRATE
  8. ASPIRIN. [Concomitant]
     Active Substance: ASPIRIN
  9. PROBIOTIC [Concomitant]
     Active Substance: PROBIOTICS NOS
  10. LANSOPRAZOLE. [Concomitant]
     Active Substance: LANSOPRAZOLE

REACTIONS (1)
  - Amnesia [None]

NARRATIVE: CASE EVENT DATE: 20160511
